FAERS Safety Report 5798004-X (Version None)
Quarter: 2008Q3

REPORT INFORMATION
  Report Type: 
  Country: None (occurrence: None)
  Receive Date: 20080702
  Receipt Date: 20050608
  Transmission Date: 20090109
  Serious: Yes (Disabling)
  Sender: FDA-Public Use
  Company Number: B0384436A

PATIENT
  Sex: Female

DRUGS (1)
  1. HALFAN [Suspect]
     Indication: MALARIA
     Dates: start: 19950101

REACTIONS (2)
  - DEAFNESS [None]
  - OTOTOXICITY [None]
